FAERS Safety Report 24911039 (Version 1)
Quarter: 2025Q1

REPORT INFORMATION
  Report Type: Spontaneous
  Country: US (occurrence: None)
  Receive Date: 20250130
  Receipt Date: 20250130
  Transmission Date: 20250408
  Serious: Yes (Other)
  Sender: FDA-CTU
  Company Number: None

PATIENT
  Age: 70 Year
  Sex: Female
  Weight: 83.25 kg

DRUGS (1)
  1. BIVIGAM [Suspect]
     Active Substance: HUMAN IMMUNOGLOBULIN G
     Indication: Immunodeficiency common variable
     Route: 041
     Dates: start: 20250130, end: 20250130

REACTIONS (4)
  - Rash erythematous [None]
  - Pruritus [None]
  - Infusion related reaction [None]
  - No reaction on previous exposure to drug [None]

NARRATIVE: CASE EVENT DATE: 20250130
